FAERS Safety Report 10591047 (Version 3)
Quarter: 2014Q4

REPORT INFORMATION
  Report Type: Spontaneous
  Country: US (occurrence: US)
  Receive Date: 20141118
  Receipt Date: 20141230
  Transmission Date: 20150529
  Serious: Yes (Hospitalization)
  Sender: FDA-Public Use
  Company Number: CHPA2014US015305

PATIENT
  Age: 77 Year
  Sex: Female

DRUGS (2)
  1. PRIVATE LABEL STRENGTH UNKNOWN [Suspect]
     Active Substance: NICOTINE
     Indication: SMOKING CESSATION THERAPY
     Dosage: 1 DF, QD
     Route: 062
  2. NICOTINE TRANSDERMAL SYSTEM STEP 1 [Suspect]
     Active Substance: NICOTINE
     Indication: SMOKING CESSATION THERAPY
     Dosage: 21 MG, QD
     Route: 062
     Dates: start: 20141111

REACTIONS (7)
  - Dyspnoea [Recovering/Resolving]
  - Cough [Recovering/Resolving]
  - Asthenia [Not Recovered/Not Resolved]
  - Wrong technique in drug usage process [Unknown]
  - Emphysema [Recovering/Resolving]
  - Respiratory tract congestion [Recovering/Resolving]
  - Back pain [Recovering/Resolving]

NARRATIVE: CASE EVENT DATE: 20141104
